FAERS Safety Report 18664354 (Version 1)
Quarter: 2020Q4

REPORT INFORMATION
  Report Type: Spontaneous
  Country: DE (occurrence: DE)
  Receive Date: 20201225
  Receipt Date: 20201225
  Transmission Date: 20210114
  Serious: Yes (Hospitalization)
  Sender: FDA-Public Use
  Company Number: DE-TEVA-2020-DE-1860805

PATIENT
  Age: 73 Year
  Sex: Female

DRUGS (15)
  1. VIGANTOL 1000I.E. VITAMIN D3 [Concomitant]
     Dosage: 1 DOSAGE FORMS DAILY; 1000 IU, 1-0-0-0
  2. SALBUTAMOL [Concomitant]
     Active Substance: ALBUTEROL
     Dosage: REQUIREMENT
  3. MOXONIDIN [Concomitant]
     Active Substance: MOXONIDINE
     Dosage: 1 DOSAGE FORMS DAILY; 0-0-1-0
  4. PANTOPRAZOL [Concomitant]
     Active Substance: PANTOPRAZOLE SODIUM
     Dosage: 40 MG EVERY OTHER DAY, 0-0-0-1
  5. CANDESARTAN. [Concomitant]
     Active Substance: CANDESARTAN
     Dosage: 32 MILLIGRAM DAILY;   1-0-1-0
  6. NITROFURANTOIN. [Suspect]
     Active Substance: NITROFURANTOIN
     Route: 065
  7. OPIPRAMOL [Concomitant]
     Active Substance: OPIPRAMOL
     Dosage: 100 MILLIGRAM DAILY;   0-0-0-1
  8. CETIRIZIN [Concomitant]
     Active Substance: CETIRIZINE HYDROCHLORIDE
     Dosage: 10 MILLIGRAM DAILY;   0-0-1-0
  9. IVABRADIN [Concomitant]
     Active Substance: IVABRADINE
     Dosage: 10 MILLIGRAM DAILY;  1-0-1-0
  10. ASS 100 [Suspect]
     Active Substance: ASPIRIN
     Dosage: 100 MILLIGRAM DAILY; 0-1-0-0
     Route: 065
  11. PRAMIPEXOL [Concomitant]
     Active Substance: PRAMIPEXOLE
     Dosage: .18 MILLIGRAM DAILY;  0-0-1-0
  12. BECLOMETASON [Concomitant]
     Active Substance: BECLOMETHASONE DIPROPIONATE
     Dosage: 2 DOSAGE FORMS DAILY; 0.2 MG, 2-0-0-0
     Route: 055
  13. EZETIMIB [Concomitant]
     Active Substance: EZETIMIBE
     Dosage: 10 MILLIGRAM DAILY;  1-0-0-0
  14. FLUVASTATIN [Concomitant]
     Active Substance: FLUVASTATIN SODIUM
     Dosage: 20 MG EVERY OTHER DAY, 0-0-1-0
  15. LEVOTHYROXIN-NATRIUM [Concomitant]
     Active Substance: LEVOTHYROXINE SODIUM
     Dosage: 75 MICROGRAM DAILY; 75 UG, 1-0-0-0

REACTIONS (5)
  - Dizziness [Unknown]
  - Palpitations [Unknown]
  - Chest discomfort [Unknown]
  - Vomiting [Unknown]
  - Presyncope [Unknown]
